FAERS Safety Report 6709984-X (Version None)
Quarter: 2010Q2

REPORT INFORMATION
  Report Type: 
  Country: None (occurrence: None)
  Receive Date: 20100504
  Receipt Date: 20100422
  Transmission Date: 20101027
  Serious: Yes (Life-Threatening, Hospitalization)
  Sender: FDA-Public Use
  Company Number: DE-WYE-H08856109

PATIENT
  Age: 22 Year
  Sex: Female
  Weight: 57 kg

DRUGS (7)
  1. PANTOZOL [Suspect]
     Indication: PROPHYLAXIS AGAINST GASTROINTESTINAL ULCER
     Route: 048
     Dates: start: 20090121, end: 20090210
  2. OXYGESIC [Suspect]
     Dosage: UNKNOWN
     Route: 048
     Dates: start: 20090130, end: 20090210
  3. CLEXANE [Suspect]
     Indication: THROMBOSIS PROPHYLAXIS
     Dosage: UNKNOWN
     Route: 058
     Dates: start: 20090121
  4. CLEXANE [Suspect]
     Dosage: 0.4, FREQUENCY UNSPECIFIED
     Route: 058
     Dates: start: 20090223, end: 20090227
  5. IBUPROFEN [Suspect]
     Indication: PAIN
     Dosage: 400, FREQUENCY UNSPECIFIED
     Route: 048
     Dates: start: 20090121, end: 20090130
  6. VOLTAREN [Suspect]
     Dosage: 50 MG, FREQUENCY UNSPECIFIED
     Route: 054
     Dates: start: 20090130, end: 20090210
  7. BERLOSIN [Concomitant]
     Indication: PAIN
     Dosage: 500, FREQUENCY UNSPECIFIED
     Route: 048
     Dates: start: 20090121, end: 20090130

REACTIONS (1)
  - HEPATITIS FULMINANT [None]
